FAERS Safety Report 17573172 (Version 1)
Quarter: 2020Q1

REPORT INFORMATION
  Report Type: Spontaneous
  Country: US (occurrence: US)
  Receive Date: 20200323
  Receipt Date: 20200323
  Transmission Date: 20200409
  Serious: Yes (Other)
  Sender: FDA-Public Use
  Company Number: US-NOVOPROD-719021

PATIENT
  Sex: Female

DRUGS (2)
  1. NOVOLOG [Suspect]
     Active Substance: INSULIN ASPART
     Indication: DIABETES MELLITUS
     Dosage: DOSE 15 IU, 2 HOURS POST MEAL
     Route: 058
  2. TRESIBA [Suspect]
     Active Substance: INSULIN DEGLUDEC
     Indication: DIABETES MELLITUS
     Dosage: 75 IU, QD
     Route: 058

REACTIONS (4)
  - Balance disorder [Unknown]
  - Localised infection [Unknown]
  - Osteomyelitis [Unknown]
  - Weight increased [Unknown]

NARRATIVE: CASE EVENT DATE: 2019
